FAERS Safety Report 26068910 (Version 1)
Quarter: 2025Q4

REPORT INFORMATION
  Report Type: Spontaneous
  Country: US (occurrence: US)
  Receive Date: 20251120
  Receipt Date: 20251120
  Transmission Date: 20260118
  Serious: Yes (Hospitalization, Other)
  Sender: ADAPTIS PHARMA INDIA
  Company Number: US-Adaptis Pharma Private Limited-2188955

PATIENT
  Age: 50 Year
  Sex: Male

DRUGS (3)
  1. LEVETIRACETAM [Suspect]
     Active Substance: LEVETIRACETAM
     Indication: Partial seizures
  2. LACOSAMIDE [Concomitant]
     Active Substance: LACOSAMIDE
  3. OXCARBAZEPINE [Concomitant]
     Active Substance: OXCARBAZEPINE

REACTIONS (1)
  - Encephalitis autoimmune [Recovering/Resolving]

NARRATIVE: CASE EVENT DATE: 20241219
